FAERS Safety Report 5065820-1 (Version None)
Quarter: 2006Q3

REPORT INFORMATION
  Report Type: 
  Country: None (occurrence: None)
  Receive Date: 20060731
  Receipt Date: 20060724
  Transmission Date: 20061208
  Serious: Yes (Other)
  Sender: FDA-Public Use
  Company Number: US-JNJFOC-20060503787

PATIENT
  Sex: Male

DRUGS (5)
  1. VIADUR [Suspect]
     Route: 058
  2. VIADUR [Suspect]
     Indication: PROSTATE CANCER
     Route: 058
  3. LASIX [Concomitant]
     Route: 048
  4. K+10 [Concomitant]
     Route: 048
  5. ATENOLOL [Concomitant]
     Route: 048

REACTIONS (1)
  - DERMATOMYOSITIS [None]
